FAERS Safety Report 25447396 (Version 1)
Quarter: 2025Q2

REPORT INFORMATION
  Report Type: Spontaneous
  Country: US (occurrence: US)
  Receive Date: 20250617
  Receipt Date: 20250617
  Transmission Date: 20250716
  Serious: No
  Sender: SANOFI AVENTIS
  Company Number: US-SA-2025SA170642

PATIENT
  Age: 90 Year
  Sex: Female

DRUGS (21)
  1. DUPIXENT [Suspect]
     Active Substance: DUPILUMAB
     Indication: Dermatitis atopic
     Dosage: 300 MG, QOW
     Route: 058
  2. TRELEGY ELLIPTA [Concomitant]
     Active Substance: FLUTICASONE FUROATE\UMECLIDINIUM BROMIDE\VILANTEROL TRIFENATATE
  3. ALBUTEROL SULFATE [Concomitant]
     Active Substance: ALBUTEROL SULFATE
  4. ARICEPT [Concomitant]
     Active Substance: DONEPEZIL HYDROCHLORIDE
  5. ELIQUIS [Concomitant]
     Active Substance: APIXABAN
  6. GUAIFENESIN [Concomitant]
     Active Substance: GUAIFENESIN
  7. LEVOTHYROXINE [Concomitant]
     Active Substance: LEVOTHYROXINE
  8. MIRTAZAPINE [Concomitant]
     Active Substance: MIRTAZAPINE
  9. MONTELUKAST [Concomitant]
     Active Substance: MONTELUKAST
  10. NITROGLYCERIN [Concomitant]
     Active Substance: NITROGLYCERIN
  11. OMEPRAZOLE [Concomitant]
     Active Substance: OMEPRAZOLE
  12. OXYBUTYNIN [Concomitant]
     Active Substance: OXYBUTYNIN
  13. PRIMIDONE [Concomitant]
     Active Substance: PRIMIDONE
  14. SPIRIVA [Concomitant]
     Active Substance: TIOTROPIUM BROMIDE MONOHYDRATE
  15. SPIRONOLACTONE [Concomitant]
     Active Substance: SPIRONOLACTONE
  16. TYLENOL [Concomitant]
     Active Substance: ACETAMINOPHEN
  17. VITAMIN D3 [Concomitant]
     Active Substance: CHOLECALCIFEROL
  18. ATORVASTATIN [Concomitant]
     Active Substance: ATORVASTATIN
  19. FUROSEMIDE [Concomitant]
     Active Substance: FUROSEMIDE
  20. ESTRADIOL [Concomitant]
     Active Substance: ESTRADIOL
  21. CITALOPRAM [Concomitant]
     Active Substance: CITALOPRAM

REACTIONS (3)
  - Hypotension [Not Recovered/Not Resolved]
  - Pruritus [Not Recovered/Not Resolved]
  - Inappropriate schedule of product administration [Unknown]

NARRATIVE: CASE EVENT DATE: 20250101
